FAERS Safety Report 12520943 (Version 1)
Quarter: 2016Q2

REPORT INFORMATION
  Report Type: Spontaneous
  Country: US (occurrence: None)
  Receive Date: 20160630
  Receipt Date: 20160630
  Transmission Date: 20160815
  Serious: Yes (Hospitalization)
  Sender: FDA-Public Use
  Company Number: None

PATIENT
  Age: 66 Year
  Sex: Male
  Weight: 51.7 kg

DRUGS (2)
  1. PIPERACILLIN/TAZOBACTAM [Suspect]
     Active Substance: PIPERACILLIN SODIUM\TAZOBACTAM SODIUM
     Indication: UPPER RESPIRATORY TRACT INFECTION
     Dosage: 3.375 GM OTHER IV
     Route: 042
     Dates: start: 20160618, end: 20160621
  2. PIPERACILLIN/TAZOBACTAM [Suspect]
     Active Substance: PIPERACILLIN SODIUM\TAZOBACTAM SODIUM
     Indication: BACTERAEMIA
     Dosage: 3.375 GM OTHER IV
     Route: 042
     Dates: start: 20160618, end: 20160621

REACTIONS (3)
  - Eosinophilia [None]
  - Pleural effusion [None]
  - Pyrexia [None]

NARRATIVE: CASE EVENT DATE: 20160629
